FAERS Safety Report 14820164 (Version 1)
Quarter: 2018Q2

REPORT INFORMATION
  Report Type: Report from Study
  Country: CO (occurrence: CO)
  Receive Date: 20180427
  Receipt Date: 20180427
  Transmission Date: 20180711
  Serious: Yes (Death, Hospitalization, Other)
  Sender: FDA-Public Use
  Company Number: CO-ACTELION-A-CH2018-171216

PATIENT
  Age: 41 Year
  Sex: Female
  Weight: 45 kg

DRUGS (4)
  1. OPSUMIT [Suspect]
     Active Substance: MACITENTAN
     Indication: PULMONARY ARTERIAL HYPERTENSION
     Dosage: 5 MG, QD
     Route: 048
     Dates: start: 20171229, end: 20180414
  2. FUROSEMIDE. [Concomitant]
     Active Substance: FUROSEMIDE
     Dosage: UNK
     Route: 048
     Dates: start: 20170728
  3. OPSUMIT [Suspect]
     Active Substance: MACITENTAN
     Dosage: 10 MG, QD
     Route: 048
     Dates: start: 20170728
  4. ENALAPRIL [Concomitant]
     Active Substance: ENALAPRIL
     Route: 048

REACTIONS (10)
  - Pallor [Unknown]
  - Dyspnoea [Unknown]
  - Motor dysfunction [Unknown]
  - Jugular vein distension [Unknown]
  - Headache [Unknown]
  - Dry mouth [Unknown]
  - Cyanosis [Unknown]
  - Oedema peripheral [Unknown]
  - Respiratory arrest [Fatal]
  - Face oedema [Unknown]

NARRATIVE: CASE EVENT DATE: 20170728
